FAERS Safety Report 7017590 (Version 5)
Quarter: 2014Q2

REPORT INFORMATION
  Report Type: Spontaneous
  Country: US (occurrence: US)
  Receive Date: 20090611
  Receipt Date: 20140409
  Transmission Date: 20141212
  Serious: Yes (Hospitalization, Other)
  Sender: FDA-Public Use
  Company Number: US-ALEXION-A200900443

PATIENT
  Age: 72 Year
  Sex: Male
  Weight: 82 kg

DRUGS (8)
  1. SOLIRIS [Suspect]
     Indication: PAROXYSMAL NOCTURNAL HAEMOGLOBINURIA
     Dosage: 600 MG, UNK
     Route: 042
     Dates: start: 20071129, end: 20071219
  2. SOLIRIS [Suspect]
     Dosage: 900 MG, Q2W
     Route: 042
     Dates: start: 20071226
  3. LEVAQUIN [Concomitant]
     Route: 042
  4. FOLATE [Concomitant]
     Dosage: 1 MG, QD
     Route: 048
  5. IRON [Concomitant]
  6. VITAMIN D                          /00107901/ [Concomitant]
  7. LUMIGAN [Concomitant]
     Dosage: 1 DROP, QD
  8. FERROUS SULFATE [Concomitant]
     Dosage: 325 MG, QD
     Route: 048

REACTIONS (8)
  - Pneumonia [Unknown]
  - Haemolytic anaemia [Unknown]
  - Renal failure acute [Unknown]
  - Vitreous haemorrhage [Unknown]
  - Condition aggravated [Unknown]
  - Thrombocytopenia [Unknown]
  - Photopsia [Unknown]
  - Rash [Unknown]
